FAERS Safety Report 9722280 (Version 1)
Quarter: 2013Q4

REPORT INFORMATION
  Report Type: Spontaneous
  Country: ES (occurrence: ES)
  Receive Date: 20131202
  Receipt Date: 20131202
  Transmission Date: 20140711
  Serious: Yes (Death, Other)
  Sender: FDA-Public Use
  Company Number: ES-AMGEN-ESPSP2013084396

PATIENT
  Sex: 0

DRUGS (2)
  1. PANITUMUMAB [Suspect]
     Indication: PRODUCT USED FOR UNKNOWN INDICATION
     Dosage: 6 MG/KG, Q2WK
     Route: 065
  2. CHEMOTHERAPEUTICS [Concomitant]
     Dosage: UNK

REACTIONS (6)
  - Disease progression [Fatal]
  - Death [Fatal]
  - Skin toxicity [Unknown]
  - Hypomagnesaemia [Unknown]
  - Hypocalcaemia [Unknown]
  - Hypokalaemia [Unknown]
